FAERS Safety Report 23129211 (Version 2)
Quarter: 2023Q4

REPORT INFORMATION
  Report Type: Spontaneous
  Country: JP (occurrence: JP)
  Receive Date: 20231031
  Receipt Date: 20231205
  Transmission Date: 20240110
  Serious: Yes (Disabling)
  Sender: FDA-Public Use
  Company Number: JP-BAYER-2023A151790

PATIENT
  Age: 32 Year
  Sex: Female

DRUGS (7)
  1. YAZ [Suspect]
     Active Substance: DROSPIRENONE\ETHINYL ESTRADIOL
     Indication: Infertility
     Dosage: 1 DF, QD
     Route: 048
     Dates: start: 20221229, end: 20230118
  2. FEMARA [Suspect]
     Active Substance: LETROZOLE
     Indication: Infertility
     Dosage: 2.5 MG DAILY
     Route: 048
     Dates: start: 20221216, end: 20221220
  3. FEMARA [Suspect]
     Active Substance: LETROZOLE
     Indication: Infertility
     Dosage: 5 MG DAILY
     Route: 048
     Dates: start: 20221221, end: 20221222
  4. FEMARA [Suspect]
     Active Substance: LETROZOLE
     Indication: Infertility
     Dosage: UNK
  5. GONADOTROPHIN, CHORIONIC [Suspect]
     Active Substance: GONADOTROPHIN, CHORIONIC
     Indication: Infertility
     Dosage: 150 UNITS
     Route: 030
     Dates: start: 20221221
  6. GONADOTROPHIN, CHORIONIC [Suspect]
     Active Substance: GONADOTROPHIN, CHORIONIC
     Indication: Infertility
     Dosage: 150 UNITS
     Dates: start: 20221226
  7. DUPHASTON [Concomitant]
     Active Substance: DYDROGESTERONE
     Indication: Infertility
     Dosage: 5 MG, BID
     Route: 048
     Dates: start: 20221202, end: 20221211

REACTIONS (1)
  - Meniere^s disease [Recovered/Resolved with Sequelae]

NARRATIVE: CASE EVENT DATE: 20230114
